FAERS Safety Report 6626934-5 (Version None)
Quarter: 2010Q1

REPORT INFORMATION
  Report Type: 
  Country: None (occurrence: None)
  Receive Date: 20100311
  Receipt Date: 20100304
  Transmission Date: 20100710
  Serious: Yes (Other)
  Sender: FDA-Public Use
  Company Number: US-BAYER-201015703NA

PATIENT
  Age: 41 Year
  Sex: Female

DRUGS (1)
  1. MIRENA [Suspect]
     Indication: CONTRACEPTION
     Route: 015
     Dates: start: 20091101, end: 20100302

REACTIONS (13)
  - ACNE [None]
  - ALOPECIA [None]
  - ANGER [None]
  - CRYING [None]
  - DEPRESSION [None]
  - FEELING ABNORMAL [None]
  - INSOMNIA [None]
  - LOSS OF LIBIDO [None]
  - MOOD SWINGS [None]
  - MUSCULAR WEAKNESS [None]
  - NIGHT SWEATS [None]
  - SEXUAL AVERSION DISORDER [None]
  - WEIGHT INCREASED [None]
